FAERS Safety Report 6166650-X (Version None)
Quarter: 2009Q2

REPORT INFORMATION
  Report Type: 
  Country: None (occurrence: None)
  Receive Date: 20090423
  Receipt Date: 20090423
  Transmission Date: 20091009
  Serious: Yes (Other)
  Sender: FDA-Public Use
  Company Number: None

PATIENT
  Sex: Female

DRUGS (1)
  1. ABILIFY [Suspect]
     Indication: BIPOLAR DISORDER
     Dosage: 10 MG QDAY PO
     Route: 048

REACTIONS (3)
  - DYSPHAGIA [None]
  - MUSCLE TWITCHING [None]
  - SWOLLEN TONGUE [None]
